FAERS Safety Report 8989687 (Version 1)
Quarter: 2012Q4

REPORT INFORMATION
  Report Type: 
  Country: JP (occurrence: JP)
  Receive Date: 20121228
  Receipt Date: 20121228
  Transmission Date: 20130627
  Serious: Yes (Hospitalization, Other)
  Sender: FDA-Public Use
  Company Number: JP-009507513-2012SP016829

PATIENT
  Age: 63 Year
  Sex: Female
  Weight: 45 kg

DRUGS (13)
  1. PEGINTRON [Suspect]
     Indication: CHRONIC HEPATITIS C
     Dosage: 1.5 Microgram per kilogram, qw,daily dose unknown
     Route: 058
     Dates: start: 20120209
  2. REBETOL [Suspect]
     Indication: CHRONIC HEPATITIS C
     Dosage: 600 mg, qd
     Route: 048
     Dates: start: 20120209, end: 20120307
  3. REBETOL [Suspect]
     Dosage: 200 mg, qd
     Route: 048
     Dates: start: 20120308, end: 20120419
  4. REBETOL [Suspect]
     Dosage: 400 mg, qd
     Route: 048
     Dates: start: 20120421
  5. TELAVIC [Suspect]
     Indication: CHRONIC HEPATITIS C
     Dosage: 1500 mg, qd
     Route: 048
     Dates: start: 20120209, end: 20120302
  6. TELAVIC [Suspect]
     Dosage: 1500 mg, qd
     Route: 048
     Dates: start: 20120308, end: 20120329
  7. TELAVIC [Suspect]
     Dosage: 1000 mg, qd
     Route: 048
     Dates: start: 20120330, end: 20120419
  8. TELAVIC [Suspect]
     Dosage: 1000 mg, qd
     Route: 048
     Dates: start: 20120421
  9. PARIET [Concomitant]
     Dosage: 10 mg, qd
     Route: 048
  10. PROMAC (POLAPREZINC) [Suspect]
     Dosage: 1 g, qd
     Route: 048
  11. ALLOPURINOL [Concomitant]
     Dosage: 200 mg, qd, UPDATE(28MAY2012)
     Route: 048
     Dates: start: 20120212
  12. ALLOPURINOL [Concomitant]
     Dosage: 100 mg, qd
     Route: 048
  13. CELESTAMINE [Concomitant]
     Dosage: UPDATE(28MAY2012), UPDATE(26JUN2012): STOP DATE
     Route: 048
     Dates: start: 20120213, end: 20120216

REACTIONS (4)
  - Hepatic function abnormal [Not Recovered/Not Resolved]
  - Vomiting [Recovering/Resolving]
  - Pyrexia [Not Recovered/Not Resolved]
  - Nausea [Recovering/Resolving]
